FAERS Safety Report 7754625-6 (Version None)
Quarter: 2011Q3

REPORT INFORMATION
  Report Type: 
  Country: None (occurrence: None)
  Receive Date: 20110915
  Receipt Date: 20110831
  Transmission Date: 20111222
  Serious: Yes (Death, Hospitalization)
  Sender: FDA-Public Use
  Company Number: JP-AMGEN-JPNCT2011037297

PATIENT
  Age: 74 Year
  Sex: Male
  Weight: 38 kg

DRUGS (20)
  1. SOLETON [Concomitant]
     Dosage: AS NEEDED
     Route: 048
     Dates: end: 20090603
  2. NEUROTROPIN [Concomitant]
     Dosage: UNK
     Route: 042
     Dates: start: 20100209, end: 20100223
  3. LOCAL ANESTHETICS [Concomitant]
     Indication: ANAESTHESIA PROCEDURE
     Dosage: UNKNOWN
     Route: 061
     Dates: start: 20100325, end: 20100325
  4. CALCICHEW D3 [Concomitant]
     Indication: OSTEOPOROSIS
     Dosage: UNK
     Route: 048
     Dates: start: 20100930, end: 20110728
  5. DIGESTIVES, INCL ENZYMES [Concomitant]
     Indication: HYPERPHAGIA
     Dosage: AS NEEDED
     Route: 048
     Dates: end: 20090613
  6. TRANEXAMIC ACID [Concomitant]
     Route: 042
     Dates: start: 20100204, end: 20100204
  7. MONTELUKAST SODIUM [Concomitant]
     Route: 048
     Dates: start: 20100204, end: 20100210
  8. CONTRAST MEDIA [Concomitant]
     Indication: COMPUTERISED TOMOGRAM
     Dosage: UNK
     Route: 042
     Dates: start: 20100623, end: 20100623
  9. DEXTROMETHORPHAN HYDROBROMIDE [Concomitant]
     Dosage: UNK
     Route: 048
     Dates: start: 20101022, end: 20110203
  10. ANTISEPTICS [Concomitant]
     Dosage: UNKNOWN
     Route: 061
     Dates: start: 20100407, end: 20110222
  11. DENOSUMAB [Suspect]
     Indication: OSTEOPOROSIS
     Dosage: UNK, Q6MO
     Route: 058
     Dates: start: 20080804
  12. KAIGEN [Concomitant]
     Indication: NASOPHARYNGITIS
     Dosage: AS NEEDED
     Route: 048
     Dates: start: 20090720
  13. KAIGEN [Concomitant]
     Indication: DECREASED APPETITE
  14. DASEN [Concomitant]
     Dosage: AS NEEDED
     Route: 048
     Dates: end: 20090603
  15. MARZULENE S [Concomitant]
     Indication: GASTRITIS PROPHYLAXIS
     Dosage: AS NEEDED
     Route: 048
     Dates: end: 20090603
  16. ASCORBIC ACID [Concomitant]
     Route: 048
     Dates: start: 20100204, end: 20100210
  17. CONBELBE [Concomitant]
     Route: 042
     Dates: start: 20100204, end: 20100204
  18. METHYCOBAL [Concomitant]
     Dosage: UNK
     Route: 042
     Dates: start: 20100209, end: 20100223
  19. INFLUENZA HA VACCINE [Concomitant]
     Indication: ANTIVIRAL PROPHYLAXIS
     Route: 058
     Dates: start: 20091218, end: 20091218
  20. APHTASOLON [Concomitant]
     Dosage: UNK
     Route: 062
     Dates: start: 20100326, end: 20100410

REACTIONS (3)
  - PNEUMONIA [None]
  - PNEUMOTHORAX [None]
  - HEPATIC FAILURE [None]
